FAERS Safety Report 20499104 (Version 2)
Quarter: 2022Q1

REPORT INFORMATION
  Report Type: Spontaneous
  Country: AU (occurrence: AU)
  Receive Date: 20220222
  Receipt Date: 20220302
  Transmission Date: 20220423
  Serious: Yes (Hospitalization)
  Sender: FDA-Public Use
  Company Number: AU-CELGENE-AUS-20220203060

PATIENT
  Age: 39 Year

DRUGS (8)
  1. AZACITIDINE [Suspect]
     Active Substance: AZACITIDINE
     Indication: Malignant melanoma
     Dosage: 200 MILLIGRAM
     Route: 048
     Dates: start: 20211021
  2. AZACITIDINE [Suspect]
     Active Substance: AZACITIDINE
     Indication: Off label use
     Dosage: 200 MILLIGRAM
     Route: 048
     Dates: start: 20220106, end: 20220106
  3. CARBOPLATIN [Concomitant]
     Active Substance: CARBOPLATIN
     Indication: Malignant melanoma
     Dosage: 440 MILLIGRAM
     Route: 065
     Dates: start: 20211021
  4. CARBOPLATIN [Concomitant]
     Active Substance: CARBOPLATIN
     Dosage: 440 MILLIGRAM
     Route: 065
     Dates: start: 20211217, end: 20211217
  5. NIVOLUMAB [Concomitant]
     Active Substance: NIVOLUMAB
     Indication: Malignant melanoma
     Dosage: 360 MILLIGRAM
     Route: 065
     Dates: start: 20211021
  6. NIVOLUMAB [Concomitant]
     Active Substance: NIVOLUMAB
     Dosage: 360 MILLIGRAM
     Route: 065
     Dates: start: 20211217, end: 20211217
  7. IPILIMUMAB [Concomitant]
     Active Substance: IPILIMUMAB
     Indication: Malignant melanoma
     Dosage: 82 MILLIGRAM
     Route: 065
     Dates: start: 20211021
  8. IPILIMUMAB [Concomitant]
     Active Substance: IPILIMUMAB
     Dosage: 82 MILLIGRAM
     Route: 065
     Dates: start: 20211217, end: 20211217

REACTIONS (1)
  - Lymphoedema [Recovered/Resolved]

NARRATIVE: CASE EVENT DATE: 20220124
